FAERS Safety Report 20806964 (Version 1)
Quarter: 2022Q2

REPORT INFORMATION
  Report Type: Other
  Country: LT (occurrence: None)
  Receive Date: 20220510
  Receipt Date: 20220510
  Transmission Date: 20220721
  Serious: Yes (Death, Hospitalization, Other)
  Sender: FDA-Public Use
  Company Number: LT-Umedica-000276

PATIENT
  Age: 18 Year
  Sex: Female

DRUGS (1)
  1. SILDENAFIL [Suspect]
     Active Substance: SILDENAFIL
     Indication: Pulmonary arterial hypertension

REACTIONS (6)
  - Exposure during pregnancy [Unknown]
  - Vascular resistance pulmonary increased [Unknown]
  - Right atrial enlargement [Unknown]
  - Cardiac failure acute [Fatal]
  - Pulmonary arterial hypertension [Unknown]
  - Condition aggravated [Fatal]
